FAERS Safety Report 19967750 (Version 2)
Quarter: 2021Q4

REPORT INFORMATION
  Report Type: Spontaneous
  Country: US (occurrence: US)
  Receive Date: 20211019
  Receipt Date: 20211024
  Transmission Date: 20220304
  Serious: No
  Sender: FDA-Public Use
  Company Number: 2021A779211

PATIENT
  Age: 9 Year
  Sex: Male

DRUGS (1)
  1. LYNPARZA [Suspect]
     Active Substance: OLAPARIB
     Indication: Glioblastoma
     Dosage: 150 MG, TWICE DAILY (BID)
     Route: 048
     Dates: start: 20210718

REACTIONS (4)
  - Therapy non-responder [Not Recovered/Not Resolved]
  - Product administered to patient of inappropriate age [Unknown]
  - Incorrect dose administered [Unknown]
  - Product use in unapproved indication [Unknown]

NARRATIVE: CASE EVENT DATE: 20210101
